FAERS Safety Report 7901411-X (Version None)
Quarter: 2011Q4

REPORT INFORMATION
  Report Type: 
  Country: None (occurrence: None)
  Receive Date: 20111108
  Receipt Date: 20110826
  Transmission Date: 20120403
  Serious: No
  Sender: FDA-Public Use
  Company Number: US-MYLANLABS-2011S1018094

PATIENT
  Age: 55 Year
  Sex: Female

DRUGS (8)
  1. LOSARTAN POTASSIUM [Concomitant]
     Indication: BLOOD PRESSURE INCREASED
  2. LIPITOR [Concomitant]
     Indication: BLOOD CHOLESTEROL INCREASED
  3. CYCLOBENZAPRINE HYDROCHLORIDE [Suspect]
     Indication: MUSCLE SPASMS
     Route: 048
     Dates: start: 20110627
  4. WELLBUTRIN [Concomitant]
  5. PREMARIN [Concomitant]
  6. LASIX [Concomitant]
     Indication: BLOOD PRESSURE INCREASED
  7. AMITRIPTYLINE HCL [Concomitant]
     Indication: NEURALGIA
  8. ADDERALL 5 [Concomitant]
     Indication: ATTENTION DEFICIT/HYPERACTIVITY DISORDER

REACTIONS (2)
  - DRUG INEFFECTIVE [None]
  - MUSCLE SPASMS [None]
